FAERS Safety Report 5849251-X (Version None)
Quarter: 2008Q3

REPORT INFORMATION
  Report Type: 
  Country: None (occurrence: None)
  Receive Date: 20080819
  Receipt Date: 20080812
  Transmission Date: 20090109
  Serious: Yes (Other)
  Sender: FDA-Public Use
  Company Number: US-BAYER-200827520NA

PATIENT
  Age: 67 Year
  Sex: Female
  Weight: 47 kg

DRUGS (7)
  1. CLIMARA [Suspect]
     Indication: DRUG USE FOR UNKNOWN INDICATION
     Route: 062
  2. ESTRACE [Suspect]
     Indication: DRUG USE FOR UNKNOWN INDICATION
  3. PROVERA [Suspect]
     Indication: MENOPAUSE
     Route: 048
     Dates: start: 19960204, end: 19980524
  4. ESTRADERM [Suspect]
     Indication: MENOPAUSE
     Dates: start: 19960204, end: 19990630
  5. ESTROGENIC SUBSTANCE [Suspect]
     Indication: MENOPAUSE
  6. DEPO-PROVERA [Suspect]
     Indication: MENOPAUSE
  7. CYCRIN [Suspect]
     Indication: MENOPAUSE

REACTIONS (1)
  - BREAST CANCER [None]
